FAERS Safety Report 4723207-2 (Version None)
Quarter: 2005Q3

REPORT INFORMATION
  Report Type: 
  Country: None (occurrence: None)
  Receive Date: 20050720
  Receipt Date: 20050708
  Transmission Date: 20060218
  Serious: Yes (Other)
  Sender: FDA-Public Use
  Company Number: CHPA2005US01961

PATIENT
  Age: 46 Year
  Sex: Female
  Weight: 57.6 kg

DRUGS (6)
  1. TRANSDERM SCOP [Suspect]
     Indication: MOTION SICKNESS
     Dosage: TRANSDERMAL
     Route: 062
     Dates: start: 20050602, end: 20050612
  2. TRANSDERM SCOP [Suspect]
     Indication: MOTION SICKNESS
     Dosage: TRANSDERMAL
     Route: 062
     Dates: start: 20050616, end: 20050619
  3. TRANSDERM SCOP [Suspect]
     Indication: MOTION SICKNESS
     Dosage: TRANSDERMAL
     Route: 062
     Dates: end: 20050630
  4. TRANSDERM SCOP [Suspect]
     Indication: MOTION SICKNESS
     Dosage: TRANSDERMAL
     Route: 062
     Dates: start: 20050616
  5. BONINE                (MECLOZINE HYDROCHLORIDE0 [Suspect]
     Indication: DIZZINESS
     Dosage: 25 MG,
     Route: 062
     Dates: start: 20050614, end: 20050615
  6. CONTRACEPTIVES UNS [Concomitant]

REACTIONS (10)
  - CHILLS [None]
  - DIZZINESS [None]
  - DRUG HYPERSENSITIVITY [None]
  - DRUG WITHDRAWAL SYNDROME [None]
  - GAIT DISTURBANCE [None]
  - INNER EAR DISORDER [None]
  - LOSS OF CONSCIOUSNESS [None]
  - MALAISE [None]
  - PSYCHOMOTOR SKILLS IMPAIRED [None]
  - TREMOR [None]
